FAERS Safety Report 21087427 (Version 1)
Quarter: 2022Q3

REPORT INFORMATION
  Report Type: Spontaneous
  Country: US (occurrence: None)
  Receive Date: 20220714
  Receipt Date: 20220714
  Transmission Date: 20221026
  Serious: Yes (Life-Threatening)
  Sender: FDA-Public Use
  Company Number: None

PATIENT
  Age: 47 Year
  Sex: Male
  Weight: 78 kg

DRUGS (2)
  1. LISINOPRIL [Suspect]
     Active Substance: LISINOPRIL
     Indication: Hypertension
     Route: 048
     Dates: start: 20120309, end: 20210828
  2. LISINOPRIL [Suspect]
     Active Substance: LISINOPRIL
     Indication: Diabetes mellitus
     Dosage: 5 MG AM PO
     Route: 048
     Dates: start: 20120309, end: 20210828

REACTIONS (3)
  - Lip swelling [None]
  - Swelling face [None]
  - Angioedema [None]

NARRATIVE: CASE EVENT DATE: 20210827
